FAERS Safety Report 4496626-X (Version None)
Quarter: 2004Q4

REPORT INFORMATION
  Report Type: 
  Country: None (occurrence: None)
  Receive Date: 20041108
  Receipt Date: 20041025
  Transmission Date: 20050328
  Serious: Yes (Hospitalization)
  Sender: FDA-Public Use
  Company Number: 2004CG02190

PATIENT
  Age: 51 Year
  Sex: Male

DRUGS (3)
  1. CRESTOR [Suspect]
     Indication: DYSLIPIDAEMIA
     Dosage: 10 MG QD PO
     Route: 048
     Dates: start: 20040409, end: 20040619
  2. TEMESTA [Concomitant]
  3. PROPOFOL [Concomitant]

REACTIONS (4)
  - CHROMATURIA [None]
  - CYTOLYTIC HEPATITIS [None]
  - FATIGUE [None]
  - MYALGIA [None]
